FAERS Safety Report 10412287 (Version 1)
Quarter: 2014Q2

REPORT INFORMATION
  Report Type: Spontaneous
  Country: US (occurrence: None)
  Receive Date: 20140604
  Receipt Date: 20140604
  Transmission Date: 20141212
  Serious: Yes (Hospitalization)
  Sender: FDA-Public Use
  Company Number: 20121130VANCO3694

PATIENT
  Age: 69 Year
  Sex: Male
  Weight: 97 kg

DRUGS (15)
  1. VANCOCIN [Suspect]
     Indication: CLOSTRIDIUM DIFFICILE INFECTION
     Route: 048
     Dates: start: 20121011, end: 20121026
  2. FLAGYL (METRONIDAZOLE) [Concomitant]
  3. ASPIRIN (ACETYLSALICYLIC ACID) [Concomitant]
  4. PRAVACHOL (PRAVASTATIN SODIUM) [Concomitant]
  5. POTASSIUM (POTASSIUM) [Concomitant]
  6. MAGNESIUM (MAGNESIUM) [Concomitant]
  7. PHOSPHORUS (PHOSPHORUS) [Concomitant]
  8. FLOMAX (MORNIFLUMATE) [Concomitant]
  9. FLORASTTOR (SACCHAROMYCES BOULARDII) [Concomitant]
  10. SKELAXIN (METAXALONE) [Concomitant]
  11. MULTIVITAMIN (MULTIVITAMINS) [Concomitant]
  12. NIASPAN (NICOTINIC ACID) [Concomitant]
  13. LEXAPRO (ESCITALOPRAM OXALATE) [Concomitant]
  14. ZOFRAN (ONDANSETRON) [Concomitant]
  15. TYLENOL (PARACETAMOL) [Concomitant]

REACTIONS (1)
  - Clostridium difficile infection [None]
